FAERS Safety Report 4383174-0 (Version None)
Quarter: 2004Q2

REPORT INFORMATION
  Report Type: 
  Country: None (occurrence: None)
  Receive Date: 20040622
  Receipt Date: 20040622
  Transmission Date: 20050107
  Serious: No
  Sender: FDA-Public Use
  Company Number: None

PATIENT
  Age: 12 Year
  Sex: Female
  Weight: 43.5453 kg

DRUGS (3)
  1. GUANFACINE HCL [Suspect]
     Indication: AGGRESSION
     Dosage: 1 MG PO BID
     Route: 048
     Dates: start: 20040308
  2. CITALOPRAM [Concomitant]
  3. RISPERIDONE [Concomitant]

REACTIONS (2)
  - BLOOD PRESSURE DECREASED [None]
  - BRADYCARDIA [None]
